FAERS Safety Report 4376496-0 (Version None)
Quarter: 2004Q2

REPORT INFORMATION
  Report Type: 
  Country: None (occurrence: None)
  Receive Date: 20040611
  Receipt Date: 20040611
  Transmission Date: 20050107
  Serious: Yes (Death, Life-Threatening, Hospitalization, Disabling)
  Sender: FDA-Public Use
  Company Number: None

PATIENT
  Age: 48 Year
  Sex: Male
  Weight: 46.7 kg

DRUGS (39)
  1. GEODON [Suspect]
  2. LACTULOSE [Concomitant]
  3. FERROUS SUL ELX [Concomitant]
  4. MAGNESIUM OXIDE [Concomitant]
  5. HUMULIN R [Concomitant]
  6. DOCUSATE [Concomitant]
  7. OMEPRAZOLE [Concomitant]
  8. MULTIVITAMINS LIQ [Concomitant]
  9. OMEPRAZOLE [Concomitant]
  10. POTASSIUM CHLORIDE [Concomitant]
  11. FAMOTIDINE [Concomitant]
  12. ZHEPARIN [Concomitant]
  13. HYDROCOTISONE [Concomitant]
  14. SODIUM POLYSTYRENE SULFATE [Concomitant]
  15. BISACODYL [Concomitant]
  16. MULTI-VITAMINS [Concomitant]
  17. DOCUSATE [Concomitant]
  18. INSULIN, GLARGINE [Concomitant]
  19. BENZTROPINE MESYLATE [Concomitant]
  20. ZIPRASIDONE [Concomitant]
  21. QUETIAPINE FUMARATE [Concomitant]
  22. TRAZODONE HCL [Concomitant]
  23. LORAZEPAM [Concomitant]
  24. SODIUM BIPHOSPHATE/SODIUM PHOSPHATE EDEMA [Concomitant]
  25. HYDROCORTISONE VALERATE [Concomitant]
  26. LUBRIDERM LOTION [Concomitant]
  27. ALENDRONATE SOD [Concomitant]
  28. ZIPRASIDONE INJ [Concomitant]
  29. INSULIN ASPART [Concomitant]
  30. INSULIN ASPART, HUMAN [Concomitant]
  31. FERROUS SULFATE TAB [Concomitant]
  32. HALOPERIDOL [Concomitant]
  33. LISINOPRIL [Concomitant]
  34. FOLIC ACID [Concomitant]
  35. OLANZAPINE [Concomitant]
  36. LORAZEPAM [Concomitant]
  37. OLANZAPINE [Concomitant]
  38. INSULIN HUMAN LISPRO [Concomitant]
  39. DRXTROSE [Concomitant]

REACTIONS (2)
  - HYPOTHERMIA [None]
  - RHABDOMYOLYSIS [None]
